FAERS Safety Report 15331991 (Version 2)
Quarter: 2018Q4

REPORT INFORMATION
  Report Type: Report from Study
  Country: US (occurrence: US)
  Receive Date: 20180829
  Receipt Date: 20181112
  Transmission Date: 20190204
  Serious: Yes (Hospitalization, Other)
  Sender: FDA-Public Use
  Company Number: PHEH2018US034917

PATIENT
  Sex: Male

DRUGS (1)
  1. ENTRESTO [Suspect]
     Active Substance: SACUBITRIL\VALSARTAN
     Indication: CARDIAC FAILURE CHRONIC
     Route: 048

REACTIONS (8)
  - Fluid retention [Unknown]
  - Fatigue [Unknown]
  - Drug ineffective [Unknown]
  - Amnesia [Unknown]
  - Pericardial effusion [Unknown]
  - Dyspnoea [Unknown]
  - Weight gain poor [Unknown]
  - Peripheral swelling [Unknown]
